FAERS Safety Report 8553701-8 (Version None)
Quarter: 2012Q3

REPORT INFORMATION
  Report Type: 
  Country: None (occurrence: None)
  Receive Date: 20120725
  Receipt Date: 20120725
  Transmission Date: 20120928
  Serious: No
  Sender: FDA-Public Use
  Company Number: None

PATIENT
  Age: 45 Year
  Sex: Male
  Weight: 68.0396 kg

DRUGS (1)
  1. NASONEX [Suspect]
     Indication: RHINITIS
     Dosage: TWO SPRAYS EACH NOSTRIL TWO TIMES A DAY NASAL
     Route: 045

REACTIONS (9)
  - PERIARTHRITIS [None]
  - VISUAL IMPAIRMENT [None]
  - PARANASAL SINUS HYPERSECRETION [None]
  - WEIGHT INCREASED [None]
  - ACNE [None]
  - HEADACHE [None]
  - MUSCULOSKELETAL PAIN [None]
  - INFLUENZA LIKE ILLNESS [None]
  - SCAR [None]
